FAERS Safety Report 5631167-5 (Version None)
Quarter: 2008Q1

REPORT INFORMATION
  Report Type: 
  Country: None (occurrence: None)
  Receive Date: 20080219
  Receipt Date: 20080207
  Transmission Date: 20080703
  Serious: Yes (Hospitalization, Disabling, Other)
  Sender: FDA-Public Use
  Company Number: CZ-PFIZER INC-2008013035

PATIENT
  Sex: Male

DRUGS (4)
  1. CHANTIX [Suspect]
     Indication: EX-SMOKER
     Dosage: TEXT:DAILY
     Route: 048
     Dates: start: 20070315, end: 20070803
  2. TRITTICO [Concomitant]
     Route: 048
  3. HUMULIN N [Concomitant]
     Route: 058
  4. HUMALOG [Concomitant]
     Route: 058

REACTIONS (8)
  - CARDIAC ASTHMA [None]
  - CARDIAC FAILURE [None]
  - CARDIAC FAILURE CHRONIC [None]
  - DEPRESSION [None]
  - DISABILITY [None]
  - MYOCARDIAL INFARCTION [None]
  - PULMONARY HYPERTENSION [None]
  - TRICUSPID VALVE INCOMPETENCE [None]
